FAERS Safety Report 8275011-9 (Version None)
Quarter: 2012Q2

REPORT INFORMATION
  Report Type: 
  Country: None (occurrence: None)
  Receive Date: 20120411
  Receipt Date: 20120327
  Transmission Date: 20120825
  Serious: Yes (Other)
  Sender: FDA-Public Use
  Company Number: CHPA2012US006030

PATIENT
  Age: 72 Year
  Sex: Male

DRUGS (2)
  1. EXCEDRIN EXTRA STRENGTH TABLETS [Suspect]
     Indication: HEADACHE
     Dosage: 1 DF, QD
     Route: 048
  2. EXCEDRIN PM CAPLETS [Suspect]
     Indication: INSOMNIA
     Dosage: 2 DF, QHS
     Route: 048

REACTIONS (3)
  - PROSTATE CANCER [None]
  - ABDOMINAL DISCOMFORT [None]
  - DRUG ADMINISTRATION ERROR [None]
